FAERS Safety Report 4753371-0 (Version None)
Quarter: 2005Q3

REPORT INFORMATION
  Report Type: 
  Country: None (occurrence: None)
  Receive Date: 20050823
  Receipt Date: 20050809
  Transmission Date: 20060218
  Serious: No
  Sender: FDA-Public Use
  Company Number: USA0506100399

PATIENT
  Age: 54 Year
  Sex: Male
  Weight: 88 kg

DRUGS (9)
  1. STRATTERA [Suspect]
     Indication: ATTENTION DEFICIT/HYPERACTIVITY DISORDER
     Dosage: 60 MG
     Dates: start: 20050413, end: 20050503
  2. STRATTERA [Suspect]
     Indication: MAJOR DEPRESSION
     Dosage: 60 MG
     Dates: start: 20050413, end: 20050503
  3. ASA (ACETYLSALICYLIC ACID0 [Concomitant]
  4. MULTI-VITAMINS [Concomitant]
  5. WELLBUTRIN SR 9BUPROPION) [Concomitant]
  6. HYZAAR [Concomitant]
  7. VIAGRA [Concomitant]
  8. NORVASC [Concomitant]
  9. ANDROGEL (TESTOSTERONE0 [Concomitant]

REACTIONS (3)
  - ALANINE AMINOTRANSFERASE INCREASED [None]
  - ASPARTATE AMINOTRANSFERASE INCREASED [None]
  - RASH MACULO-PAPULAR [None]
